FAERS Safety Report 5078287-4 (Version None)
Quarter: 2006Q3

REPORT INFORMATION
  Report Type: 
  Country: None (occurrence: None)
  Receive Date: 20060811
  Receipt Date: 20060518
  Transmission Date: 20061208
  Serious: Yes (Death, Hospitalization, Other)
  Sender: FDA-Public Use
  Company Number: JP-MERCK-0605USA04283

PATIENT
  Age: 56 Year
  Sex: Female
  Weight: 49 kg

DRUGS (11)
  1. TIMOPTIC [Suspect]
     Indication: INTRAOCULAR PRESSURE INCREASED
     Route: 047
     Dates: start: 20041026, end: 20050520
  2. LEVOFLOXACIN [Concomitant]
     Indication: CONJUNCTIVAL HYPERAEMIA
     Route: 047
     Dates: start: 20040908, end: 20050520
  3. LEVOFLOXACIN [Concomitant]
     Route: 047
     Dates: start: 20050521
  4. LEVOFLOXACIN [Concomitant]
     Indication: CONJUNCTIVITIS
     Route: 047
     Dates: start: 20040908, end: 20050520
  5. LEVOFLOXACIN [Concomitant]
     Route: 047
     Dates: start: 20050521
  6. FLUMETHOLON [Suspect]
     Indication: CONJUNCTIVAL HYPERAEMIA
     Route: 047
     Dates: start: 20040908, end: 20050520
  7. FLUMETHOLON [Suspect]
     Route: 047
     Dates: start: 20050521
  8. FLUMETHOLON [Suspect]
     Indication: CONJUNCTIVITIS
     Route: 047
     Dates: start: 20040908, end: 20050520
  9. FLUMETHOLON [Suspect]
     Route: 047
     Dates: start: 20050521
  10. AZOPT DROPS [Suspect]
     Indication: INTRAOCULAR PRESSURE INCREASED
     Route: 047
     Dates: start: 20041026, end: 20050520
  11. HYALEIN [Concomitant]
     Indication: KERATITIS
     Route: 047
     Dates: start: 20041129, end: 20050520

REACTIONS (8)
  - BREAST CANCER METASTATIC [None]
  - CATARACT NUCLEAR [None]
  - CATARACT SUBCAPSULAR [None]
  - GENERAL PHYSICAL HEALTH DETERIORATION [None]
  - KERATOPATHY [None]
  - METASTASES TO CENTRAL NERVOUS SYSTEM [None]
  - METASTASES TO LYMPH NODES [None]
  - VOCAL CORD PARALYSIS [None]
